FAERS Safety Report 7002279-9 (Version None)
Quarter: 2010Q3

REPORT INFORMATION
  Report Type: 
  Country: None (occurrence: None)
  Receive Date: 20100920
  Receipt Date: 20100712
  Transmission Date: 20110219
  Serious: Yes (Other)
  Sender: FDA-Public Use
  Company Number: US-ASTRAZENECA-2010SE28327

PATIENT
  Age: 51 Year
  Sex: Female
  Weight: 102.1 kg

DRUGS (6)
  1. SEROQUEL [Suspect]
     Indication: DEPRESSION
     Route: 048
     Dates: start: 20000101
  2. EFFEXOR [Concomitant]
  3. OXYCONTIN [Concomitant]
  4. OXYCODONE HCL [Concomitant]
  5. CYMBALTA [Concomitant]
  6. TRILEPTAL [Concomitant]

REACTIONS (3)
  - CEREBROVASCULAR ACCIDENT [None]
  - OVARIAN CANCER [None]
  - VISUAL IMPAIRMENT [None]
